FAERS Safety Report 21697372 (Version 6)
Quarter: 2023Q1

REPORT INFORMATION
  Report Type: Report from Study
  Country: None (occurrence: ES)
  Receive Date: 20221208
  Receipt Date: 20230106
  Transmission Date: 20230417
  Serious: Yes (Other)
  Sender: FDA-Public Use
  Company Number: ES-AKCEA THERAPEUTICS, INC.-2022IS004378

PATIENT
  Age: 58 Year
  Sex: Female

DRUGS (5)
  1. TEGSEDI [Suspect]
     Active Substance: INOTERSEN SODIUM
     Indication: Hereditary neuropathic amyloidosis
     Route: 058
     Dates: start: 20220228
  2. DEVICE [Suspect]
     Active Substance: DEVICE
  3. OLMESARTAN MEDOXOMIL [Concomitant]
     Active Substance: OLMESARTAN MEDOXOMIL
     Route: 048
  4. ASPIRIN [Concomitant]
     Active Substance: ASPIRIN
     Route: 048
  5. LORAZEPAM [Concomitant]
     Active Substance: LORAZEPAM
     Route: 048

REACTIONS (40)
  - Hallucination [Unknown]
  - Blindness [Unknown]
  - Coma [Recovered/Resolved]
  - Seizure [Recovered/Resolved]
  - Dysarthria [Recovered/Resolved]
  - Mental disorder [Recovered/Resolved]
  - Depressed mood [Not Recovered/Not Resolved]
  - Mean platelet volume increased [Not Recovered/Not Resolved]
  - Bedridden [Unknown]
  - Mean cell haemoglobin concentration decreased [Not Recovered/Not Resolved]
  - Urine leukocyte esterase positive [Unknown]
  - Urinary tract infection [Unknown]
  - Red blood cell count decreased [Unknown]
  - Haemoglobin decreased [Unknown]
  - Blood magnesium decreased [Not Recovered/Not Resolved]
  - Blood creatinine increased [Recovered/Resolved]
  - Creatinine urine increased [Recovered/Resolved]
  - Crystal urine present [Unknown]
  - Asthenia [Not Recovered/Not Resolved]
  - Paraesthesia oral [Recovered/Resolved]
  - Haemoglobin urine present [Not Recovered/Not Resolved]
  - Myoglobin urine present [Not Recovered/Not Resolved]
  - Polyuria [Recovered/Resolved]
  - Pollakiuria [Recovered/Resolved]
  - Lymphocyte count decreased [Unknown]
  - N-terminal prohormone brain natriuretic peptide increased [Recovered/Resolved]
  - Nitrite urine present [Not Recovered/Not Resolved]
  - Vitamin A decreased [Not Recovered/Not Resolved]
  - Diarrhoea [Recovered/Resolved]
  - Injection site haematoma [Unknown]
  - Protein urine present [Not Recovered/Not Resolved]
  - Platelet count decreased [Recovered/Resolved]
  - Intra-abdominal haematoma [Unknown]
  - Blood glucose increased [Recovered/Resolved]
  - Escherichia test positive [Recovered/Resolved]
  - Prealbumin decreased [Recovered/Resolved]
  - Urinary tract discomfort [Recovered/Resolved]
  - Urine odour abnormal [Recovering/Resolving]
  - Nervous system disorder [Unknown]
  - Disease progression [Unknown]

NARRATIVE: CASE EVENT DATE: 20220328
